FAERS Safety Report 12059845 (Version 2)
Quarter: 2016Q1

REPORT INFORMATION
  Report Type: Spontaneous
  Country: IT (occurrence: IT)
  Receive Date: 20160210
  Receipt Date: 20160211
  Transmission Date: 20160526
  Serious: Yes (Life-Threatening)
  Sender: FDA-Public Use
  Company Number: IT-TEVA-631985ACC

PATIENT
  Age: 59 Year
  Sex: Female
  Weight: 64 kg

DRUGS (3)
  1. PACLITAXEL. [Concomitant]
     Active Substance: PACLITAXEL
     Indication: METASTASES TO LYMPH NODES
     Dosage: 280 MG
     Route: 042
     Dates: start: 20151116, end: 20160111
  2. CARBOPLATINO TEVA - IV 5 ML 10 MG/ML - TEVA PHARMA B.V. [Suspect]
     Active Substance: CARBOPLATIN
     Indication: METASTASES TO LYMPH NODES
     Dosage: 450 MG CYCLICAL
     Route: 042
     Dates: start: 20151116, end: 20160111
  3. CARBOPLATINO TEVA - IV 5 ML 10 MG/ML - TEVA PHARMA B.V. [Suspect]
     Active Substance: CARBOPLATIN
     Dosage: 150 MG CYCLICAL
     Route: 042
     Dates: start: 20151116, end: 20160111

REACTIONS (6)
  - Dyspnoea [Recovering/Resolving]
  - Vertigo [Recovering/Resolving]
  - Hypersensitivity [Recovering/Resolving]
  - Paraesthesia oral [None]
  - Paraesthesia [Recovering/Resolving]
  - Hyperhidrosis [Recovering/Resolving]

NARRATIVE: CASE EVENT DATE: 20151207
